FAERS Safety Report 4979729-2 (Version None)
Quarter: 2006Q2

REPORT INFORMATION
  Report Type: 
  Country: None (occurrence: None)
  Receive Date: 20060418
  Receipt Date: 20060405
  Transmission Date: 20061013
  Serious: Yes (Other)
  Sender: FDA-Public Use
  Company Number: 2006049022

PATIENT
  Age: 50 Year
  Sex: Male

DRUGS (3)
  1. VIAGRA [Suspect]
     Indication: ERECTILE DYSFUNCTION
     Dosage: 25 MG 25 MG, 1 IN 1 AS NECESSARY), OPHTHALMIC
     Route: 047
     Dates: start: 20030101
  2. ZYPREXA [Concomitant]
  3. LITHIUM CARBONATE [Concomitant]

REACTIONS (1)
  - VISUAL DISTURBANCE [None]
